FAERS Safety Report 9881616 (Version 2)
Quarter: 2014Q1

REPORT INFORMATION
  Report Type: Spontaneous
  Country: CL (occurrence: CL)
  Receive Date: 20140207
  Receipt Date: 20140214
  Transmission Date: 20141002
  Serious: Yes (Other)
  Sender: FDA-Public Use
  Company Number: CL-PFIZER INC-2014033255

PATIENT
  Age: 63 Year
  Sex: Female

DRUGS (4)
  1. AZULFIDINE EN [Suspect]
     Indication: COLITIS
     Dosage: 500 MG, 6X/DAY
     Route: 048
     Dates: start: 2006
  2. PREDNISONE [Concomitant]
     Dosage: 5 MG, 1X/DAY
  3. PLAQUINOL [Concomitant]
     Dosage: 2 DF, 1X/DAY
  4. XALACOM [Concomitant]
     Indication: GLAUCOMA
     Dosage: 1 DF, 1X/DAY
     Route: 047
     Dates: start: 2006

REACTIONS (1)
  - Intervertebral disc protrusion [Not Recovered/Not Resolved]
